FAERS Safety Report 19326939 (Version 2)
Quarter: 2021Q3

REPORT INFORMATION
  Report Type: Spontaneous
  Country: US (occurrence: US)
  Receive Date: 20210528
  Receipt Date: 20210914
  Transmission Date: 20211014
  Serious: Yes (Hospitalization)
  Sender: FDA-Public Use
  Company Number: US-GW PHARMA-202105USGW02567

PATIENT

DRUGS (2)
  1. EPIDIOLEX [Suspect]
     Active Substance: CANNABIDIOL
     Indication: LENNOX-GASTAUT SYNDROME
     Dosage: 1300 MILLIGRAM
     Route: 048
     Dates: start: 202102, end: 202107
  2. EPIDIOLEX [Suspect]
     Active Substance: CANNABIDIOL
     Dosage: 650 MILLIGRAM
     Route: 048
     Dates: start: 202107

REACTIONS (2)
  - Weight fluctuation [Unknown]
  - Emergency care [Unknown]

NARRATIVE: CASE EVENT DATE: 2021
